FAERS Safety Report 8886959 (Version 2)
Quarter: 2012Q4

REPORT INFORMATION
  Report Type: 
  Country: US (occurrence: US)
  Receive Date: 20121105
  Receipt Date: 20121108
  Transmission Date: 20130627
  Serious: Yes (Hospitalization)
  Sender: FDA-Public Use
  Company Number: US-PFIZER INC-2012273886

PATIENT

DRUGS (1)
  1. PROTONIX [Suspect]
     Dosage: UNK

REACTIONS (1)
  - Enterocolitis infectious [Unknown]
